FAERS Safety Report 13058642 (Version 2)
Quarter: 2017Q1

REPORT INFORMATION
  Report Type: Spontaneous
  Country: US (occurrence: US)
  Receive Date: 20161223
  Receipt Date: 20170203
  Transmission Date: 20170428
  Serious: No
  Sender: FDA-Public Use
  Company Number: US-PFIZER INC-2016595834

PATIENT
  Age: 70 Year
  Sex: Female
  Weight: 101 kg

DRUGS (1)
  1. IBRANCE [Suspect]
     Active Substance: PALBOCICLIB
     Indication: NEOPLASM MALIGNANT
     Dosage: 1 DF, CYCLIC (DAILY ON DAY ONE THROUGH DAY 21)
     Route: 048
     Dates: start: 201610

REACTIONS (2)
  - Aphonia [Not Recovered/Not Resolved]
  - Influenza [Not Recovered/Not Resolved]

NARRATIVE: CASE EVENT DATE: 201610
